FAERS Safety Report 9306566 (Version 1)
Quarter: 2013Q1

REPORT INFORMATION
  Report Type: Spontaneous
  Country: US (occurrence: None)
  Receive Date: 20130206
  Receipt Date: 20130206
  Transmission Date: 20140127
  Serious: Yes (Other)
  Sender: FDA-Public Use
  Company Number: DKLU1083232

PATIENT
  Age: 45 Year
  Sex: Male
  Weight: 111.5 kg

DRUGS (4)
  1. SABRIL (TABLET) (SABRIL) (VIGABATRIN) (500 MG, TABLET) [Suspect]
     Indication: TEMPORAL LOBE EPILEPSY
     Route: 048
     Dates: start: 20120229
  2. TRILEPTAL (OXCARBAZEPINE) (300 MG) [Concomitant]
  3. KEPPRA XR (LEVETIRACETAM) (500 MG, TABLET) [Concomitant]
  4. LORAZEPAM (LORAZEPAM) (1 MG, TABLET) [Concomitant]

REACTIONS (5)
  - Convulsion [None]
  - Drop attacks [None]
  - Wrist fracture [None]
  - Loss of consciousness [None]
  - Foot fracture [None]
